FAERS Safety Report 7331453-7 (Version None)
Quarter: 2011Q1

REPORT INFORMATION
  Report Type: 
  Country: None (occurrence: None)
  Receive Date: 20110228
  Receipt Date: 20110228
  Transmission Date: 20110831
  Serious: Yes (Disabling, Other)
  Sender: FDA-Public Use
  Company Number: None

PATIENT
  Age: 43 Year
  Sex: Female
  Weight: 102.0593 kg

DRUGS (1)
  1. ZOLPIDEM 10 MG 1 X ORAL 017 TEVA [Suspect]
     Indication: POSTOPERATIVE CARE
     Dosage: 10MG 1X ORAL 047
     Route: 048
     Dates: start: 20101013, end: 20101015

REACTIONS (6)
  - SCAR [None]
  - FALL [None]
  - HEAD INJURY [None]
  - WRONG DRUG ADMINISTERED [None]
  - OPEN WOUND [None]
  - SOMNAMBULISM [None]
